FAERS Safety Report 15248223 (Version 1)
Quarter: 2018Q3

REPORT INFORMATION
  Report Type: Spontaneous
  Country: NO (occurrence: NO)
  Receive Date: 20180807
  Receipt Date: 20180807
  Transmission Date: 20181010
  Serious: Yes (Death, Life-Threatening, Hospitalization, Other)
  Sender: FDA-Public Use
  Company Number: NO-BAUSCH-BL-2018-020908

PATIENT
  Age: 30 Year
  Sex: Male

DRUGS (3)
  1. PARACETAMOL [Suspect]
     Active Substance: ACETAMINOPHEN
     Indication: ANALGESIC THERAPY
     Route: 042
  2. PARACETAMOL [Suspect]
     Active Substance: ACETAMINOPHEN
     Route: 048
  3. PARACETAMOL 0.5G, CODEINE 0.03G [Suspect]
     Active Substance: ACETAMINOPHEN\CODEINE PHOSPHATE
     Indication: ANALGESIC THERAPY
     Dosage: 9 DOSES AS 0.5 G IN COMBINATION WITH 30 MG CODEINE (TOTAL 14.5 G)
     Route: 065

REACTIONS (3)
  - Circulatory collapse [Unknown]
  - Hepatic failure [Fatal]
  - Respiratory failure [Unknown]
